FAERS Safety Report 6695770-6 (Version None)
Quarter: 2010Q2

REPORT INFORMATION
  Report Type: 
  Country: None (occurrence: None)
  Receive Date: 20100426
  Receipt Date: 20100416
  Transmission Date: 20101027
  Serious: Yes (Hospitalization, Disabling, Other)
  Sender: FDA-Public Use
  Company Number: US-BAYER-201017719NA

PATIENT
  Age: 61 Year
  Sex: Male

DRUGS (3)
  1. BETASERON [Suspect]
     Indication: PRIMARY PROGRESSIVE MULTIPLE SCLEROSIS
     Route: 058
     Dates: start: 20091125, end: 20100322
  2. BETASERON [Suspect]
     Route: 058
     Dates: start: 19931202, end: 19981202
  3. BETASERON [Suspect]
     Dosage: TOTAL DAILY DOSE: 8 MIU
     Route: 058
     Dates: start: 20100323

REACTIONS (10)
  - ASTHENIA [None]
  - BLOOD COUNT ABNORMAL [None]
  - BLOOD POTASSIUM INCREASED [None]
  - CONTUSION [None]
  - FALL [None]
  - KIDNEY INFECTION [None]
  - MOBILITY DECREASED [None]
  - PALPITATIONS [None]
  - SUPRAVENTRICULAR TACHYCARDIA [None]
  - ULCER HAEMORRHAGE [None]
